FAERS Safety Report 6581547-9 (Version None)
Quarter: 2010Q1

REPORT INFORMATION
  Report Type: 
  Country: None (occurrence: None)
  Receive Date: 20100215
  Receipt Date: 20100205
  Transmission Date: 20100710
  Serious: Yes (Hospitalization)
  Sender: FDA-Public Use
  Company Number: PHHO2009US08811

PATIENT
  Sex: Female
  Weight: 73.3 kg

DRUGS (4)
  1. STI571/CGP57148B T35717+TAB [Suspect]
     Indication: CHRONIC MYELOID LEUKAEMIA
     Dosage: 800 MG, UNK
     Route: 048
     Dates: start: 20051125, end: 20090907
  2. STI571/CGP57148B T35717+TAB [Suspect]
     Dosage: NO TREATMENT
     Dates: start: 20090908, end: 20090914
  3. EXCEDRIN (MIGRAINE) [Suspect]
     Dosage: UNK
  4. NEXIUM [Concomitant]

REACTIONS (8)
  - ABDOMINAL PAIN UPPER [None]
  - DUODENAL ULCER [None]
  - FAECES DISCOLOURED [None]
  - FATIGUE [None]
  - GASTRITIS [None]
  - HIATUS HERNIA [None]
  - MELAENA [None]
  - UPPER GASTROINTESTINAL HAEMORRHAGE [None]
